FAERS Safety Report 19008957 (Version 1)
Quarter: 2021Q1

REPORT INFORMATION
  Report Type: Spontaneous
  Country: DE (occurrence: DE)
  Receive Date: 20210316
  Receipt Date: 20210316
  Transmission Date: 20210420
  Serious: Yes (Life-Threatening, Disabling, Other)
  Sender: FDA-Public Use
  Company Number: DE-JNJFOC-20210318092

PATIENT
  Age: 51 Year
  Sex: Female
  Weight: 51 kg

DRUGS (2)
  1. BUDESONIDE. [Suspect]
     Active Substance: BUDESONIDE
     Dosage: 1X1
     Route: 045
     Dates: start: 202002, end: 202012
  2. BUDESONIDE. [Suspect]
     Active Substance: BUDESONIDE
     Indication: PRODUCT USED FOR UNKNOWN INDICATION
     Dosage: 2X1 HUB
     Route: 045
     Dates: start: 201902, end: 202002

REACTIONS (5)
  - Adrenal insufficiency [Not Recovered/Not Resolved]
  - Adverse reaction [Unknown]
  - Cortisol abnormal [Unknown]
  - Blood electrolytes abnormal [Unknown]
  - Blood sodium decreased [Unknown]

NARRATIVE: CASE EVENT DATE: 202010
